FAERS Safety Report 8968262 (Version 1)
Quarter: 2012Q4

REPORT INFORMATION
  Report Type: 
  Country: US (occurrence: US)
  Receive Date: 20121217
  Receipt Date: 20121217
  Transmission Date: 20130627
  Serious: Yes (Other)
  Sender: FDA-Public Use
  Company Number: US-MYLANLABS-2012S1025311

PATIENT
  Age: 37 Year
  Sex: Male

DRUGS (1)
  1. TAMOXIFEN [Suspect]
     Indication: ANAPLASTIC ASTROCYTOMA
     Dosage: 200 mg/day
     Route: 065

REACTIONS (2)
  - Maculopathy [Recovering/Resolving]
  - Cystoid macular oedema [Recovered/Resolved]
